FAERS Safety Report 5982934-X (Version None)
Quarter: 2008Q4

REPORT INFORMATION
  Report Type: 
  Country: None (occurrence: None)
  Receive Date: 20081125
  Receipt Date: 20080710
  Transmission Date: 20090506
  Serious: Yes (Hospitalization, Other)
  Sender: FDA-Public Use
  Company Number: 2008MP000115

PATIENT

DRUGS (1)
  1. GLIADEL [Suspect]
     Indication: MALIGNANT GLIOMA
     Dosage: X1;ICER

REACTIONS (12)
  - BRAIN OEDEMA [None]
  - CEREBRAL CYST [None]
  - CONVULSION [None]
  - DEEP VEIN THROMBOSIS [None]
  - DRUG ADMINISTRATION ERROR [None]
  - IMPAIRED HEALING [None]
  - IMPLANT SITE REACTION [None]
  - INTRACRANIAL HYPOTENSION [None]
  - MENINGITIS [None]
  - OFF LABEL USE [None]
  - POSTOPERATIVE WOUND INFECTION [None]
  - PULMONARY EMBOLISM [None]
